FAERS Safety Report 24076029 (Version 1)
Quarter: 2024Q3

REPORT INFORMATION
  Report Type: Report from Study
  Country: US (occurrence: US)
  Receive Date: 20240710
  Receipt Date: 20240710
  Transmission Date: 20241017
  Serious: No
  Sender: APELLIS PHARMACEUTICALS
  Company Number: US-APELLIS-APL-2024-003904

PATIENT

DRUGS (2)
  1. PEGCETACOPLAN [Suspect]
     Active Substance: PEGCETACOPLAN
     Indication: Age-related macular degeneration
     Dosage: 15 MILLIGRAM, EVERY 4 WEEKS OS
     Route: 031
     Dates: start: 20230630, end: 20240209
  2. PEGCETACOPLAN [Suspect]
     Active Substance: PEGCETACOPLAN
     Dosage: 1.000ML
     Route: 031
     Dates: end: 20240315

REACTIONS (3)
  - Visual field defect [Recovered/Resolved]
  - Metamorphopsia [Recovered/Resolved]
  - Visual impairment [Unknown]

NARRATIVE: CASE EVENT DATE: 20240105
